FAERS Safety Report 16442031 (Version 1)
Quarter: 2019Q2

REPORT INFORMATION
  Report Type: Report from Study
  Country: None (occurrence: US)
  Receive Date: 20190617
  Receipt Date: 20190617
  Transmission Date: 20190711
  Serious: No
  Sender: FDA-Public Use
  Company Number: US-US WORLDMEDS, LLC-USW201811-001756

PATIENT
  Age: 69 Year
  Sex: Male

DRUGS (18)
  1. NEURONTIN [Concomitant]
     Active Substance: GABAPENTIN
  2. LEVOTHYROXINE. [Concomitant]
     Active Substance: LEVOTHYROXINE
  3. ZOLOFT [Concomitant]
     Active Substance: SERTRALINE HYDROCHLORIDE
  4. MIRAPEX [Concomitant]
     Active Substance: PRAMIPEXOLE DIHYDROCHLORIDE
  5. SELEGILINE [Concomitant]
     Active Substance: SELEGILINE
  6. TIGAN [Concomitant]
     Active Substance: TRIMETHOBENZAMIDE HYDROCHLORIDE
  7. MODAFINIL. [Concomitant]
     Active Substance: MODAFINIL
  8. RYTARY [Concomitant]
     Active Substance: CARBIDOPA\LEVODOPA
  9. ISRADIPINE. [Concomitant]
     Active Substance: ISRADIPINE
  10. PREDNISONE. [Concomitant]
     Active Substance: PREDNISONE
  11. DYSPORT [Concomitant]
     Active Substance: ABOBOTULINUMTOXINA
  12. APOKYN [Suspect]
     Active Substance: APOMORPHINE HYDROCHLORIDE
     Indication: PARKINSON^S DISEASE
     Route: 058
     Dates: start: 20181119
  13. COREG [Concomitant]
     Active Substance: CARVEDILOL
  14. CLOMIPHENE [Concomitant]
     Active Substance: CLOMIPHENE
  15. OXYBUTYNIN. [Concomitant]
     Active Substance: OXYBUTYNIN CHLORIDE
  16. ANASTROZOLE. [Concomitant]
     Active Substance: ANASTROZOLE
     Dosage: SUNDAY
  17. ASA [Concomitant]
     Active Substance: ASPIRIN
  18. BACLOFEN. [Concomitant]
     Active Substance: BACLOFEN

REACTIONS (5)
  - Somnolence [Recovered/Resolved]
  - Slow speech [Recovered/Resolved]
  - Yawning [Recovered/Resolved]
  - Euphoric mood [Recovered/Resolved]
  - Muscle spasticity [Recovered/Resolved]

NARRATIVE: CASE EVENT DATE: 20181119
